FAERS Safety Report 7556620-9 (Version None)
Quarter: 2011Q2

REPORT INFORMATION
  Report Type: 
  Country: None (occurrence: None)
  Receive Date: 20110620
  Receipt Date: 20110613
  Transmission Date: 20111010
  Serious: Yes (Death)
  Sender: FDA-Public Use
  Company Number: US-TEVA-286152USA

PATIENT
  Age: 18 Year
  Sex: Male

DRUGS (1)
  1. MERCAPTOPURINE [Suspect]

REACTIONS (1)
  - HEPATOSPLENIC T-CELL LYMPHOMA [None]
